FAERS Safety Report 21317001 (Version 1)
Quarter: 2022Q3

REPORT INFORMATION
  Report Type: Spontaneous
  Country: US (occurrence: US)
  Receive Date: 20220911
  Receipt Date: 20220911
  Transmission Date: 20221027
  Serious: Yes (Other)
  Sender: FDA-Public Use
  Company Number: US-SA-SAC20220819001252

PATIENT
  Sex: Male

DRUGS (5)
  1. AUBAGIO [Suspect]
     Active Substance: TERIFLUNOMIDE
     Indication: Multiple sclerosis
     Dosage: 14 MG, QD
     Route: 048
  2. ASPIRIN [Concomitant]
     Active Substance: ASPIRIN
  3. MYRBETRIQ [Concomitant]
     Active Substance: MIRABEGRON
  4. TYLENOL [Concomitant]
     Active Substance: ACETAMINOPHEN
  5. ZETIA [Concomitant]
     Active Substance: EZETIMIBE

REACTIONS (4)
  - Pancreatitis [Unknown]
  - Asthenia [Unknown]
  - Urinary tract infection [Unknown]
  - Weight decreased [Unknown]
